FAERS Safety Report 5825595-2 (Version None)
Quarter: 2008Q3

REPORT INFORMATION
  Report Type: 
  Country: None (occurrence: None)
  Receive Date: 20080729
  Receipt Date: 20080721
  Transmission Date: 20090109
  Serious: Yes (Other)
  Sender: FDA-Public Use
  Company Number: A0736044A

PATIENT
  Age: 41 Year
  Sex: Female
  Weight: 123.6 kg

DRUGS (9)
  1. VERAMYST [Suspect]
     Route: 045
  2. GABAPENTIN [Concomitant]
     Dosage: 4.2G PER DAY
     Route: 048
  3. POTASSIUM CHLORIDE [Concomitant]
     Route: 048
  4. LEVOTHYROXINE SODIUM [Concomitant]
     Route: 048
  5. VENLAFAXINE HCL [Concomitant]
     Dosage: 75MG TWICE PER DAY
     Route: 048
  6. ZYPREXA [Concomitant]
     Dosage: 5MG AT NIGHT
     Route: 048
  7. LIPITOR [Concomitant]
     Dosage: 20MG PER DAY
     Route: 048
  8. HYDROCHLORTHIAZID [Concomitant]
     Dosage: 25MG AT NIGHT
     Route: 048
  9. METFORMIN HCL [Concomitant]
     Dosage: 500MG AT NIGHT
     Route: 048

REACTIONS (1)
  - CONJUNCTIVAL OEDEMA [None]
